FAERS Safety Report 7089366-4 (Version None)
Quarter: 2010Q4

REPORT INFORMATION
  Report Type: 
  Country: None (occurrence: None)
  Receive Date: 20101108
  Receipt Date: 20101102
  Transmission Date: 20110411
  Serious: Yes (Other)
  Sender: FDA-Public Use
  Company Number: CHPA2010FI17170

PATIENT
  Sex: Female

DRUGS (1)
  1. NICOTINELL GUM 2 MG FRUIT (NCH) [Suspect]
     Dosage: 16 GUM PIECES PER DAY
     Route: 048

REACTIONS (1)
  - DRUG DEPENDENCE [None]
